FAERS Safety Report 14484274 (Version 2)
Quarter: 2018Q2

REPORT INFORMATION
  Report Type: Spontaneous
  Country: IT (occurrence: IT)
  Receive Date: 20180205
  Receipt Date: 20180417
  Transmission Date: 20180711
  Serious: Yes (Other)
  Sender: FDA-Public Use
  Company Number: IT-ROCHE-2065545

PATIENT
  Age: 81 Year
  Sex: Female

DRUGS (1)
  1. AVASTIN [Suspect]
     Active Substance: BEVACIZUMAB
     Indication: NEOVASCULAR AGE-RELATED MACULAR DEGENERATION
     Dosage: 25 MG/ML?MOST RECENT DOSE OF BEVACIZUMAB: 14/MAY/2015
     Route: 031
     Dates: start: 20141017

REACTIONS (2)
  - Drug ineffective [Unknown]
  - Age-related macular degeneration [Unknown]

NARRATIVE: CASE EVENT DATE: 20150616
